FAERS Safety Report 17079984 (Version 2)
Quarter: 2019Q4

REPORT INFORMATION
  Report Type: Spontaneous
  Country: US (occurrence: US)
  Receive Date: 20191127
  Receipt Date: 20191128
  Transmission Date: 20200122
  Serious: Yes (Hospitalization)
  Sender: FDA-Public Use
  Company Number: US-ROCHE-2478553

PATIENT
  Age: 32 Year
  Sex: Female

DRUGS (1)
  1. PULMOZYME [Suspect]
     Active Substance: DORNASE ALFA
     Indication: PRODUCT USED FOR UNKNOWN INDICATION
     Dosage: 2.5 ML, STRENGTH: 1MG/ML REFRIGERATED AMPOULE
     Route: 065
     Dates: start: 201809

REACTIONS (2)
  - Cystic fibrosis [Unknown]
  - Tooth disorder [Unknown]

NARRATIVE: CASE EVENT DATE: 20190401
